FAERS Safety Report 24664050 (Version 1)
Quarter: 2024Q4

REPORT INFORMATION
  Report Type: Spontaneous
  Country: TH (occurrence: TH)
  Receive Date: 20241126
  Receipt Date: 20241126
  Transmission Date: 20250114
  Serious: Yes (Hospitalization)
  Sender: ASTELLAS
  Company Number: TH-ASTELLAS-2024-AER-020518

PATIENT
  Age: 64 Year
  Sex: Male

DRUGS (1)
  1. XTANDI [Suspect]
     Active Substance: ENZALUTAMIDE
     Indication: Prostate cancer
     Dosage: 4 CAPSULES ONCE DAILY
     Route: 065

REACTIONS (3)
  - Infection [Unknown]
  - Feeding disorder [Unknown]
  - Dysphagia [Unknown]
